FAERS Safety Report 9892529 (Version 2)
Quarter: 2014Q1

REPORT INFORMATION
  Report Type: Spontaneous
  Country: IE (occurrence: IE)
  Receive Date: 20140212
  Receipt Date: 20140212
  Transmission Date: 20141002
  Serious: Yes (Other)
  Sender: FDA-Public Use
  Company Number: IE-BAXTER-2013BAX048953

PATIENT
  Age: 44 Year
  Sex: Female

DRUGS (11)
  1. SODIUM CHLORIDE 0.9% W/V INTRAVENOUS INFUSION BP, POLYOLEFIN/POLYAMIDE [Suspect]
     Indication: MEDICATION DILUTION
     Route: 042
     Dates: start: 20131001, end: 20131001
  2. SODIUM CHLORIDE 0.9% W/V INTRAVENOUS INFUSION BP, POLYOLEFIN/POLYAMIDE [Suspect]
     Route: 042
     Dates: start: 20131022, end: 20131022
  3. ENDOXANA INJECTION 1 G [Suspect]
     Indication: PRODUCT USED FOR UNKNOWN INDICATION
     Route: 042
     Dates: start: 20131001, end: 20131001
  4. ENDOXANA INJECTION 1 G [Suspect]
     Route: 042
     Dates: start: 20131022, end: 20131022
  5. DOCETAXEL [Suspect]
     Indication: PRODUCT USED FOR UNKNOWN INDICATION
     Route: 042
     Dates: start: 20131001, end: 20131001
  6. DOCETAXEL [Suspect]
     Route: 042
     Dates: start: 20131022, end: 20131022
  7. DEXAMETHASONE [Suspect]
     Indication: PRODUCT USED FOR UNKNOWN INDICATION
     Route: 042
     Dates: start: 20130930, end: 20130930
  8. DEXAMETHASONE [Suspect]
     Indication: PREMEDICATION
     Route: 048
     Dates: start: 20131021, end: 20131021
  9. GRANISETRON [Suspect]
     Indication: PRODUCT USED FOR UNKNOWN INDICATION
     Route: 042
     Dates: start: 20131001, end: 20131001
  10. GRANISETRON [Suspect]
     Indication: PREMEDICATION
     Route: 042
     Dates: start: 20131022, end: 20131022
  11. PACLITAXEL [Concomitant]
     Indication: PRODUCT USED FOR UNKNOWN INDICATION
     Dates: start: 20131022, end: 20131022

REACTIONS (2)
  - Chest pain [Recovered/Resolved]
  - Flushing [Recovered/Resolved]
